FAERS Safety Report 5648525-5 (Version None)
Quarter: 2008Q1

REPORT INFORMATION
  Report Type: 
  Country: None (occurrence: None)
  Receive Date: 20080131
  Receipt Date: 20071107
  Transmission Date: 20080703
  Serious: No
  Sender: FDA-Public Use
  Company Number: 2005PV001331

PATIENT
  Age: 67 Year
  Sex: Male

DRUGS (12)
  1. EXENATIDE (EXENATIDE) PEN,DISPOSABLE [Suspect]
     Indication: TYPE 2 DIABETES MELLITUS
     Dosage: SEE IMAGE
     Route: 058
     Dates: start: 20050818, end: 20050101
  2. EXENATIDE (EXENATIDE) PEN,DISPOSABLE [Suspect]
     Indication: TYPE 2 DIABETES MELLITUS
     Dosage: SEE IMAGE
     Route: 058
     Dates: start: 20051020
  3. EXENATIDE (EXENATIDE) PEN,DISPOSABLE [Suspect]
  4. LANTUS [Concomitant]
  5. PLETAL [Concomitant]
  6. ATENOLOL [Concomitant]
  7. ASPIRIN [Concomitant]
  8. ACCURETIC [Concomitant]
  9. METFORMIN HCL [Concomitant]
  10. GLIPIZIDE [Concomitant]
  11. ZOCOR [Concomitant]
  12. ACTOS [Concomitant]

REACTIONS (5)
  - BLOOD GLUCOSE INCREASED [None]
  - FEELING ABNORMAL [None]
  - NAUSEA [None]
  - VOMITING [None]
  - WEIGHT INCREASED [None]
